FAERS Safety Report 7530651-7 (Version None)
Quarter: 2011Q2

REPORT INFORMATION
  Report Type: 
  Country: None (occurrence: None)
  Receive Date: 20110607
  Receipt Date: 20110606
  Transmission Date: 20111010
  Serious: Yes (Hospitalization, Other)
  Sender: FDA-Public Use
  Company Number: HU-ABBOTT-11P-076-0729366-00

PATIENT
  Age: 77 Year
  Sex: Female
  Weight: 43 kg

DRUGS (1)
  1. ZEMPLAR [Suspect]
     Indication: RENAL FAILURE CHRONIC
     Dosage: 10 MCG/DAILYSIS 3 X WEEKLY
     Route: 042
     Dates: start: 20110215

REACTIONS (4)
  - COUGH [None]
  - PNEUMONIA [None]
  - HEART RATE INCREASED [None]
  - ATRIAL FIBRILLATION [None]
